FAERS Safety Report 10915104 (Version 2)
Quarter: 2015Q1

REPORT INFORMATION
  Report Type: Report from Study
  Country: US (occurrence: US)
  Receive Date: 20150315
  Receipt Date: 20150324
  Transmission Date: 20150721
  Serious: Yes (Hospitalization)
  Sender: FDA-Public Use
  Company Number: US-009507513-1503USA002174

PATIENT
  Age: 45 Year
  Sex: Female
  Weight: 93.88 kg

DRUGS (27)
  1. TEMODAR [Suspect]
     Active Substance: TEMOZOLOMIDE
     Indication: BREAST CANCER
     Dosage: 150 MG/M2, QD
     Route: 048
     Dates: start: 20141120
  2. AFRIN (OXYMETAZOLINE HYDROCHLORIDE) [Concomitant]
     Indication: NASAL CONGESTION
     Dosage: TOTAL DAILY DOSE: 1 SPRAY EACH NOSTRIL, PRN
     Dates: start: 20141028
  3. XANAX [Concomitant]
     Active Substance: ALPRAZOLAM
     Indication: ANXIETY
     Dosage: TOTAL DAILY DOSE:1-2 TABS, EVERY 8 HOURS, PRN
     Route: 048
     Dates: start: 20141111
  4. HYDROMORPHONE [Concomitant]
     Active Substance: HYDROMORPHONE
     Dosage: 1MG EVERY 3 HOURS, PRN
     Route: 042
     Dates: start: 20141126, end: 20141128
  5. HYDROMORPHONE [Concomitant]
     Active Substance: HYDROMORPHONE
     Dosage: 1 OR 2 TABLETS, PRN
     Route: 048
     Dates: start: 20141128
  6. HYDROMORPHONE [Concomitant]
     Active Substance: HYDROMORPHONE
     Dosage: TOTAL DAILY DOSE: 0.5-1MG, PRN
     Route: 042
     Dates: start: 20141122, end: 20141123
  7. COMPAZINE [Concomitant]
     Active Substance: PROCHLORPERAZINE MALEATE
     Indication: NAUSEA
     Dosage: TOTAL DAILY DOSE:10MG EVERY 6HOURS, PRN
     Dates: start: 20141211
  8. ZOFRAN [Concomitant]
     Active Substance: ONDANSETRON HYDROCHLORIDE
     Indication: NAUSEA
     Dosage: TOTAL DAILY DOSE:4MG EVERY 6 HOURS, PRN
     Dates: start: 20141222
  9. FLEET (SODIUM PHOSPHATE, DIBASIC (+) SODIUM PHOSPHATE, MONOBASIC) [Concomitant]
     Indication: CONSTIPATION
     Dosage: TOTAL DAILY DOSE:1 TABLET, PRN
     Dates: start: 20150103
  10. NEUPOGEN [Concomitant]
     Active Substance: FILGRASTIM
     Dosage: 480 MG, QD
     Route: 058
     Dates: start: 20150123, end: 20150123
  11. GABAPENTIN. [Concomitant]
     Active Substance: GABAPENTIN
     Indication: CHEST PAIN
     Dosage: 300 MG, FREQUENCY: 3 IN 1 D(TID)
     Dates: start: 20141119, end: 20141124
  12. OXYCODONE [Concomitant]
     Active Substance: OXYCODONE
     Indication: MUSCULOSKELETAL CHEST PAIN
     Dosage: 40 MG,FREQUENCY: 1 IN 12H ( Q12H)
     Dates: start: 20141119, end: 20141123
  13. OXYCODONE [Concomitant]
     Active Substance: OXYCODONE
     Dosage: 60 MG, FREQUENCY: 1 IN 12H( Q12H)
     Dates: start: 20141123
  14. COLACE [Concomitant]
     Active Substance: DOCUSATE SODIUM
     Indication: CONSTIPATION PROPHYLAXIS
     Dosage: 100 MG, FREQUENCY:2 IN 1 D(BID)
     Route: 048
     Dates: start: 20141027
  15. SENOKOT [Concomitant]
     Active Substance: SENNOSIDES
     Indication: CONSTIPATION
     Dosage: 2 TABLET,  FREQUENCY:2 IN 1 D(BID)
     Route: 048
     Dates: start: 20141027
  16. DULCOLAX [Concomitant]
     Active Substance: BISACODYL OR DOCUSATE SODIUM
     Indication: CONSTIPATION
     Dosage: TOTAL DAILY DOSE:1 PER RECTUM, PRN
     Route: 054
     Dates: start: 20141102
  17. FLEXERIL [Concomitant]
     Active Substance: CYCLOBENZAPRINE HYDROCHLORIDE
     Indication: CHEST PAIN
     Dosage: TOTAL DAILY DOSE: 10 MG, 1 IN 8 HR
     Dates: start: 20141114
  18. TYLENOL [Concomitant]
     Active Substance: ACETAMINOPHEN
     Indication: CHEST PAIN
     Dosage: TOTAL DAILY DOSE: 650MG EVERY 8HOURS, PRN
     Route: 048
     Dates: start: 20141124
  19. VELIPARIB [Suspect]
     Active Substance: VELIPARIB
     Indication: BREAST CANCER
     Dosage: 40 MG, FREQUENCY: 2 IN 1 D(BID)
     Route: 048
     Dates: start: 20141120
  20. MIRALAX [Concomitant]
     Active Substance: POLYETHYLENE GLYCOL 3350
     Indication: CONSTIPATION
     Dosage: 17 MG,  FREQUENCY:1 IN 1 D(QD)
     Route: 048
     Dates: start: 20141102
  21. GABAPENTIN. [Concomitant]
     Active Substance: GABAPENTIN
     Dosage: 300 MG, 2 IN 1 D (BREAKFAST AND LUNCH)
     Dates: start: 20141125, end: 20150109
  22. HYDROMORPHONE [Concomitant]
     Active Substance: HYDROMORPHONE
     Dosage: TOTAL DAILY DOSE:0.2 ML,VIA PCA
     Route: 042
     Dates: start: 20141123, end: 20141126
  23. NEUPOGEN [Concomitant]
     Active Substance: FILGRASTIM
     Indication: NEUTROPHIL COUNT DECREASED
     Dosage: 480 MG, QD
     Route: 058
     Dates: start: 20150122, end: 20150122
  24. OXYCODONE [Concomitant]
     Active Substance: OXYCODONE
     Indication: MUSCULOSKELETAL CHEST PAIN
     Dosage: TOTAL DAILY DOSE 40MG, PRN
     Dates: start: 20141210
  25. BACTRIM [Concomitant]
     Active Substance: SULFAMETHOXAZOLE\TRIMETHOPRIM
     Indication: INFECTION PROPHYLAXIS
     Dosage: 800-160 TABLET EVERY MONDAY
     Route: 048
     Dates: start: 20141222
  26. GABAPENTIN. [Concomitant]
     Active Substance: GABAPENTIN
     Dosage: TOTAL DAILY DOSE: 600 MG, AT BEDTIME
     Dates: start: 20141125, end: 20150109
  27. HYDROMORPHONE [Concomitant]
     Active Substance: HYDROMORPHONE
     Indication: MUSCULOSKELETAL CHEST PAIN
     Dosage: 0.5MG EVERY 4 HOURS, PRN
     Route: 042
     Dates: start: 20141118, end: 20141122

REACTIONS (11)
  - Dehydration [Recovered/Resolved]
  - Malaise [Unknown]
  - Micturition disorder [Unknown]
  - Vomiting [Unknown]
  - Nausea [Unknown]
  - Nausea [Recovered/Resolved]
  - Fatigue [Unknown]
  - Lung infection [Unknown]
  - Gastrointestinal motility disorder [Unknown]
  - Decreased appetite [Unknown]
  - Confusional state [Recovered/Resolved]

NARRATIVE: CASE EVENT DATE: 20150128
